FAERS Safety Report 8082086-9 (Version None)
Quarter: 2012Q1

REPORT INFORMATION
  Report Type: 
  Country: None (occurrence: None)
  Receive Date: 20120127
  Receipt Date: 20110228
  Transmission Date: 20120608
  Serious: No
  Sender: FDA-Public Use
  Company Number: US-ABBOTT-11P-163-0708064-00

PATIENT
  Sex: Female
  Weight: 89.438 kg

DRUGS (1)
  1. HUMIRA [Suspect]
     Indication: PRODUCT USED FOR UNKNOWN INDICATION

REACTIONS (7)
  - EYE IRRITATION [None]
  - TREMOR [None]
  - ORAL DISCOMFORT [None]
  - FEELING JITTERY [None]
  - PALPITATIONS [None]
  - INCORRECT ROUTE OF DRUG ADMINISTRATION [None]
  - DEVICE MALFUNCTION [None]
